FAERS Safety Report 7822970-1 (Version None)
Quarter: 2011Q4

REPORT INFORMATION
  Report Type: 
  Country: None (occurrence: None)
  Receive Date: 20111018
  Receipt Date: 20101115
  Transmission Date: 20120403
  Serious: No
  Sender: FDA-Public Use
  Company Number: US-ASTRAZENECA-2010SE54361

PATIENT
  Age: 51 Year
  Sex: Male

DRUGS (4)
  1. SYMBICORT [Suspect]
     Indication: ASTHMA
     Dosage: 160/ 4.5 MCG, TWO PUFFS DAILY
     Route: 055
  2. PREDNISONE [Concomitant]
  3. ALBUTEROL [Concomitant]
  4. SYMBICORT [Suspect]
     Dosage: 160/ 4.5 MCG, TWO PUFFS TWO TIMES A DAY
     Route: 055
     Dates: start: 20101101, end: 20101101

REACTIONS (1)
  - DYSPNOEA [None]
